FAERS Safety Report 7065144-7 (Version None)
Quarter: 2010Q4

REPORT INFORMATION
  Report Type: 
  Country: None (occurrence: None)
  Receive Date: 20101027
  Receipt Date: 20101021
  Transmission Date: 20110411
  Serious: Yes (Hospitalization, Other)
  Sender: FDA-Public Use
  Company Number: US-PFIZER INC-2010022873

PATIENT
  Sex: Female
  Weight: 109 kg

DRUGS (4)
  1. NEURONTIN [Suspect]
     Indication: DEPRESSION
     Dosage: 1200 MG, 1X/DAY
     Route: 048
     Dates: start: 20080901
  2. NEURONTIN [Suspect]
     Indication: PAIN
     Dosage: 2500 MG PER DAY
     Dates: end: 20091101
  3. NEURONTIN [Suspect]
     Dosage: 300 MG, UNK
     Route: 048
     Dates: start: 20090101
  4. PLAVIX [Concomitant]
     Indication: PERIPHERAL VASCULAR DISORDER
     Dosage: UNK

REACTIONS (29)
  - AORTIC ARTERIOSCLEROSIS [None]
  - BRONCHITIS [None]
  - BURNING SENSATION [None]
  - CHEST PAIN [None]
  - COMPLEX REGIONAL PAIN SYNDROME [None]
  - COORDINATION ABNORMAL [None]
  - DYSPHONIA [None]
  - EAR PAIN [None]
  - HORNER'S SYNDROME [None]
  - HYPERAEMIA [None]
  - HYPERLIPIDAEMIA [None]
  - HYPOAESTHESIA [None]
  - INSOMNIA [None]
  - LYMPHADENOPATHY [None]
  - MUSCLE TWITCHING [None]
  - NERVE INJURY [None]
  - NEUROPATHY PERIPHERAL [None]
  - OROPHARYNGEAL PAIN [None]
  - PARAESTHESIA [None]
  - PERIPHERAL VASCULAR DISORDER [None]
  - SENSORY LOSS [None]
  - SINUS HEADACHE [None]
  - SINUSITIS [None]
  - SUBCLAVIAN ARTERY THROMBOSIS [None]
  - THROMBOSIS [None]
  - TOOTH ABSCESS [None]
  - UPPER RESPIRATORY TRACT INFECTION [None]
  - VOCAL CORD DISORDER [None]
  - WEIGHT INCREASED [None]
